FAERS Safety Report 5129838-2 (Version None)
Quarter: 2006Q4

REPORT INFORMATION
  Report Type: 
  Country: None (occurrence: None)
  Receive Date: 20061018
  Receipt Date: 20060901
  Transmission Date: 20070319
  Serious: Yes (Other)
  Sender: FDA-Public Use
  Company Number: PHBS2006JP13477

PATIENT
  Age: 76 Year
  Sex: Female

DRUGS (4)
  1. GLEEVEC [Suspect]
     Indication: CHRONIC MYELOID LEUKAEMIA
     Dosage: 400 MG/D
     Route: 048
     Dates: start: 20020101, end: 20040201
  2. GLEEVEC [Suspect]
     Dosage: 100 MG/D
     Route: 048
     Dates: start: 20040201, end: 20040201
  3. GLEEVEC [Suspect]
     Dosage: 100 MG EVERY OTHER DAY
     Route: 048
     Dates: start: 20040201, end: 20050801
  4. GLEEVEC [Suspect]
     Dosage: 100 MG THREE TIMES A WEEK
     Route: 048
     Dates: start: 20060101

REACTIONS (7)
  - BONE MARROW FAILURE [None]
  - CHROMOSOME ABNORMALITY [None]
  - MYELODYSPLASTIC SYNDROME [None]
  - NAUSEA [None]
  - NORMOCHROMIC NORMOCYTIC ANAEMIA [None]
  - OEDEMA [None]
  - PANCYTOPENIA [None]
